FAERS Safety Report 11090763 (Version 1)
Quarter: 2015Q2

REPORT INFORMATION
  Report Type: Spontaneous
  Country: NL (occurrence: NL)
  Receive Date: 20150505
  Receipt Date: 20150505
  Transmission Date: 20150821
  Serious: Yes (Hospitalization, Other)
  Sender: FDA-Public Use
  Company Number: NL-TEVA-559919ISR

PATIENT
  Age: 52 Year
  Sex: Female

DRUGS (3)
  1. METOPROLOLSUCCINAAT RATIOPHARM RETARD 50, TABLETTEN MET VERLENGDE AFGI [Suspect]
     Active Substance: METOPROLOL SUCCINATE
     Dates: start: 201502, end: 201504
  2. HYDROCHLOORTHIAZIDE SANDOZ [Concomitant]
     Dosage: 12.5 MILLIGRAM DAILY;
     Dates: start: 2010
  3. RAMIPRIL 10 [Concomitant]
     Dosage: 1 DOSAGE FORMS DAILY;
     Dates: start: 2010

REACTIONS (6)
  - Palpitations [Recovered/Resolved]
  - Drug ineffective [Recovered/Resolved]
  - Malaise [Recovered/Resolved]
  - Product substitution issue [Recovered/Resolved]
  - Myocardial infarction [Recovered/Resolved]
  - Migraine [Recovered/Resolved]

NARRATIVE: CASE EVENT DATE: 201502
